FAERS Safety Report 5730805-6 (Version None)
Quarter: 2008Q2

REPORT INFORMATION
  Report Type: 
  Country: None (occurrence: None)
  Receive Date: 20080507
  Receipt Date: 20080425
  Transmission Date: 20081010
  Serious: Yes (Other)
  Sender: FDA-Public Use
  Company Number: GB-PFIZER INC-2008036893

PATIENT
  Sex: Male

DRUGS (4)
  1. SERTRALINE [Suspect]
     Indication: DEPRESSION
     Dates: start: 20041109, end: 20060201
  2. VENLAFAXINE HCL [Suspect]
     Indication: DEPRESSION
  3. AMOXICILLIN [Concomitant]
  4. CEPHALEXIN [Concomitant]

REACTIONS (5)
  - ABNORMAL PALMAR/PLANTAR CREASES [None]
  - EAR MALFORMATION [None]
  - FOETAL DAMAGE [None]
  - HEAD DEFORMITY [None]
  - POLYHYDRAMNIOS [None]
